FAERS Safety Report 15607346 (Version 5)
Quarter: 2018Q4

REPORT INFORMATION
  Report Type: Spontaneous
  Country: BR (occurrence: BR)
  Receive Date: 20181112
  Receipt Date: 20181212
  Transmission Date: 20190205
  Serious: Yes (Other)
  Sender: FDA-Public Use
  Company Number: BR-PFIZER INC-2018456476

PATIENT
  Age: 65 Year
  Sex: Female
  Weight: 73 kg

DRUGS (6)
  1. LORAX [Suspect]
     Active Substance: LORAZEPAM
     Indication: ANXIETY
  2. LORAX [Suspect]
     Active Substance: LORAZEPAM
     Indication: SLEEP DISORDER
     Dosage: 1 MG, UNK
     Route: 048
  3. OLMETEC [Concomitant]
     Active Substance: OLMESARTAN MEDOXOMIL
     Indication: HYPERTENSION
     Dosage: HALF IN THE MORNING
  4. LORAX [Suspect]
     Active Substance: LORAZEPAM
     Indication: SEDATIVE THERAPY
     Dosage: 1 TABLET OF 2MG AT NIGHT PER DAY
     Route: 048
     Dates: start: 20070717
  5. LEXAPRO [Concomitant]
     Active Substance: ESCITALOPRAM OXALATE
     Indication: DEPRESSION
  6. SELOZOK [Concomitant]
     Active Substance: METOPROLOL SUCCINATE
     Indication: HYPERTENSION
     Dosage: 25 MG 1 TABLET AT NIGHT

REACTIONS (5)
  - Nervousness [Recovered/Resolved]
  - Heart rate irregular [Recovered/Resolved]
  - Drug ineffective [Not Recovered/Not Resolved]
  - Product use issue [Unknown]
  - Drug dependence [Not Recovered/Not Resolved]

NARRATIVE: CASE EVENT DATE: 2007
